FAERS Safety Report 12763967 (Version 1)
Quarter: 2016Q3

REPORT INFORMATION
  Report Type: Spontaneous
  Country: JP (occurrence: JP)
  Receive Date: 20160920
  Receipt Date: 20160920
  Transmission Date: 20161109
  Serious: Yes (Other)
  Sender: FDA-Public Use
  Company Number: JP-OTSUKA-003884

PATIENT
  Age: 71 Year
  Sex: Female
  Weight: 49.5 kg

DRUGS (8)
  1. PLETAAL TABLETS 50MG [Suspect]
     Active Substance: CILOSTAZOL
     Dosage: UNK, QD
     Route: 048
     Dates: start: 19910704, end: 19910704
  2. ZANTAC [Concomitant]
     Active Substance: RANITIDINE HYDROCHLORIDE
     Indication: PRODUCT USED FOR UNKNOWN INDICATION
     Dosage: 150 MG, UNK
     Route: 048
     Dates: start: 19910403, end: 19910702
  3. PLETAAL TABLETS 50MG [Suspect]
     Active Substance: CILOSTAZOL
     Dosage: 100 MG, QD
     Route: 048
     Dates: start: 19910611, end: 19910702
  4. VASOLAN [Suspect]
     Active Substance: VERAPAMIL HYDROCHLORIDE
     Indication: PRODUCT USED FOR UNKNOWN INDICATION
     Dosage: 80 MG, UNK
     Route: 048
     Dates: start: 19910403, end: 19910717
  5. BUFFERIN [Concomitant]
     Active Substance: ASPIRIN
     Indication: PRODUCT USED FOR UNKNOWN INDICATION
     Dosage: 1 DF, UNK
     Route: 048
     Dates: start: 19910403, end: 19910702
  6. SELBEX [Concomitant]
     Active Substance: TEPRENONE
     Indication: PRODUCT USED FOR UNKNOWN INDICATION
     Dosage: 150 MG, UNK
     Route: 048
     Dates: start: 19910403, end: 19910702
  7. PLETAAL TABLETS 50MG [Suspect]
     Active Substance: CILOSTAZOL
     Indication: ANTICOAGULANT THERAPY
     Dosage: 150 MG, QD
     Route: 048
     Dates: start: 19910403, end: 19910610
  8. NITOROL R [Concomitant]
     Active Substance: ISOSORBIDE DINITRATE
     Indication: PRODUCT USED FOR UNKNOWN INDICATION
     Dosage: 40 MG, UNK
     Route: 048
     Dates: start: 19910403, end: 19910717

REACTIONS (7)
  - Gastric mucosal lesion [Unknown]
  - Haematemesis [Recovered/Resolved]
  - Dyspepsia [Unknown]
  - Haematemesis [Recovered/Resolved]
  - Blood glucose decreased [Unknown]
  - Shock [Unknown]
  - Nausea [Unknown]

NARRATIVE: CASE EVENT DATE: 19910702
